FAERS Safety Report 6782538-5 (Version None)
Quarter: 2010Q2

REPORT INFORMATION
  Report Type: 
  Country: None (occurrence: None)
  Receive Date: 20100621
  Receipt Date: 20100611
  Transmission Date: 20101027
  Serious: Yes (Hospitalization)
  Sender: FDA-Public Use
  Company Number: NL-AMGEN-QUU417639

PATIENT
  Age: 57 Year
  Sex: Female

DRUGS (7)
  1. ENBREL [Suspect]
     Indication: RHEUMATOID ARTHRITIS
     Route: 058
     Dates: start: 20080612
  2. ZESTRIL [Concomitant]
  3. METOPROLOL TARTRATE [Concomitant]
  4. FUROSEMIDE [Concomitant]
     Dates: start: 20091008
  5. OMEPRAZOLE [Concomitant]
  6. ACENOCOUMAROL [Concomitant]
     Dosage: UNK
     Dates: start: 20091008
  7. SPIRONOLACTONE [Concomitant]
     Dates: start: 20091008

REACTIONS (2)
  - ARRHYTHMIA [None]
  - CARDIAC DISORDER [None]
